FAERS Safety Report 20973407 (Version 2)
Quarter: 2022Q3

REPORT INFORMATION
  Report Type: Spontaneous
  Country: US (occurrence: US)
  Receive Date: 20220617
  Receipt Date: 20220719
  Transmission Date: 20221027
  Serious: No
  Sender: FDA-Public Use
  Company Number: US-UROGEN PHARMA LTD.-2022-UGN-000044

PATIENT

DRUGS (17)
  1. JELMYTO [Suspect]
     Active Substance: MITOMYCIN
     Indication: Transitional cell cancer of the renal pelvis and ureter
     Dosage: 1 TIME PER WEEK (INSTILLATION)
     Dates: start: 20211004, end: 20211004
  2. JELMYTO [Suspect]
     Active Substance: MITOMYCIN
     Dosage: 1 TIME PER WEEK (INSTILLATION)
     Dates: start: 20211011, end: 20211011
  3. JELMYTO [Suspect]
     Active Substance: MITOMYCIN
     Dosage: 1 TIME PER WEEK (INSTILLATION)
     Dates: start: 20211018, end: 20211018
  4. JELMYTO [Suspect]
     Active Substance: MITOMYCIN
     Dosage: 1 TIME PER WEEK (INSTILLATION)
     Dates: start: 20211025, end: 20211025
  5. JELMYTO [Suspect]
     Active Substance: MITOMYCIN
     Dosage: 1 TIME PER WEEK (INSTILLATION)
     Dates: start: 20211101, end: 20211101
  6. JELMYTO [Suspect]
     Active Substance: MITOMYCIN
     Dosage: 1 TIME PER WEEK (INSTILLATION)
     Dates: start: 20211108, end: 20211108
  7. JELMYTO [Suspect]
     Active Substance: MITOMYCIN
     Dosage: 8 CC EVERY OTHER MONTH (INSTILLATION)
     Dates: start: 20220412, end: 20220412
  8. JELMYTO [Suspect]
     Active Substance: MITOMYCIN
     Dosage: 8 CC EVERY OTHER MONTH (INSTILLATION)
     Dates: start: 20220607, end: 20220607
  9. PANTOPRAZOLE [Concomitant]
     Active Substance: PANTOPRAZOLE
     Indication: Product used for unknown indication
     Dosage: 40 MG 1 TAB PER DAY
  10. CITALOPRAM [Concomitant]
     Active Substance: CITALOPRAM HYDROBROMIDE
     Indication: Product used for unknown indication
     Dosage: 20 MG, 1 TAB PER DAY AT NIGHT
  11. ATORVASTATIN [Concomitant]
     Active Substance: ATORVASTATIN
     Indication: Product used for unknown indication
     Dosage: 40 MG, 1 TAB PER DAY AT NIGHT
  12. BYSTOLIC [Concomitant]
     Active Substance: NEBIVOLOL HYDROCHLORIDE
     Indication: Product used for unknown indication
     Dosage: UNK
  13. ZYRTEC [Concomitant]
     Active Substance: CETIRIZINE HYDROCHLORIDE
     Indication: Product used for unknown indication
     Dosage: AS NEEDED
  14. SPIRIVA [Concomitant]
     Active Substance: TIOTROPIUM BROMIDE MONOHYDRATE
     Indication: Product used for unknown indication
     Dosage: QAM (EACH MORN)
  15. SYMBICORT [Concomitant]
     Active Substance: BUDESONIDE\FORMOTEROL FUMARATE DIHYDRATE
     Indication: Product used for unknown indication
     Dosage: TWO TIMES A DAY
  16. ALBUTEROL [Concomitant]
     Active Substance: ALBUTEROL
     Indication: Product used for unknown indication
     Dosage: 2 PUFFS (WHEN NEEDED)
  17. BENTYL [Concomitant]
     Active Substance: DICYCLOMINE HYDROCHLORIDE
     Indication: Product used for unknown indication
     Dosage: AS NEEDED

REACTIONS (8)
  - Decreased appetite [Recovered/Resolved]
  - Asthenia [Recovered/Resolved]
  - Nausea [Recovered/Resolved]
  - Fatigue [Recovered/Resolved]
  - Decreased appetite [Recovering/Resolving]
  - Asthenia [Recovering/Resolving]
  - Nausea [Recovering/Resolving]
  - Fatigue [Recovering/Resolving]

NARRATIVE: CASE EVENT DATE: 20211018
